FAERS Safety Report 5780929-2 (Version None)
Quarter: 2008Q2

REPORT INFORMATION
  Report Type: 
  Country: None (occurrence: None)
  Receive Date: 20080620
  Receipt Date: 20080610
  Transmission Date: 20081010
  Serious: Yes (Death, Hospitalization)
  Sender: FDA-Public Use
  Company Number: DE-PFIZER INC-2008046324

PATIENT
  Sex: Female
  Weight: 75 kg

DRUGS (8)
  1. CHANTIX [Suspect]
     Dosage: FREQ:DAILY
     Route: 048
  2. AMLODIPINE [Concomitant]
  3. CARVEDILOL [Concomitant]
  4. PHYSIOTENS [Concomitant]
  5. ALL OTHER THERAPEUTIC PRODUCTS [Concomitant]
  6. ALBUTEROL [Concomitant]
  7. OMEPRAZOLE [Concomitant]
  8. ATACAND [Concomitant]

REACTIONS (4)
  - DEATH [None]
  - MONOPARESIS [None]
  - MUSCLE TWITCHING [None]
  - TETANY [None]
